FAERS Safety Report 12375724 (Version 2)
Quarter: 2016Q3

REPORT INFORMATION
  Report Type: Spontaneous
  Country: US (occurrence: US)
  Receive Date: 20160517
  Receipt Date: 20160901
  Transmission Date: 20161109
  Serious: No
  Sender: FDA-Public Use
  Company Number: US-RELYPSA-RLY2016000068

PATIENT
  Sex: Male

DRUGS (16)
  1. VITAMIN D                          /00107901/ [Concomitant]
     Active Substance: ERGOCALCIFEROL
  2. SODIUM POLYSTYRENE SULFONATE. [Concomitant]
     Active Substance: SODIUM POLYSTYRENE SULFONATE
  3. HYDRALAZINE HCL [Concomitant]
     Active Substance: HYDRALAZINE HYDROCHLORIDE
  4. FOLIC ACID. [Concomitant]
     Active Substance: FOLIC ACID
  5. VICODIN HP [Concomitant]
     Active Substance: ACETAMINOPHEN\HYDROCODONE BITARTRATE
  6. LORAZEPAM. [Concomitant]
     Active Substance: LORAZEPAM
  7. OMEPRAZOLE. [Concomitant]
     Active Substance: OMEPRAZOLE
  8. CARVEDILOL. [Concomitant]
     Active Substance: CARVEDILOL
  9. VELTASSA [Suspect]
     Active Substance: PATIROMER
     Indication: HYPERKALAEMIA
     Dosage: 8.4 GM, QD
     Route: 048
     Dates: start: 20160127
  10. SIMVASTATIN. [Concomitant]
     Active Substance: SIMVASTATIN
  11. RENAL [Concomitant]
  12. SENNA LAXATIVE [Concomitant]
     Active Substance: SENNOSIDES
  13. LOPERAMIDE HCL [Concomitant]
     Active Substance: LOPERAMIDE HYDROCHLORIDE
  14. HUMALOG [Concomitant]
     Active Substance: INSULIN LISPRO
  15. ASPIRIN (E.C.) [Concomitant]
     Active Substance: ASPIRIN
  16. LANTUS [Concomitant]
     Active Substance: INSULIN GLARGINE

REACTIONS (1)
  - Dizziness [Unknown]
